FAERS Safety Report 6619438-7 (Version None)
Quarter: 2010Q1

REPORT INFORMATION
  Report Type: 
  Country: None (occurrence: None)
  Receive Date: 20100304
  Receipt Date: 20100217
  Transmission Date: 20100710
  Serious: Yes (Hospitalization, Other)
  Sender: FDA-Public Use
  Company Number: CA-1180682

PATIENT
  Age: 75 Year
  Sex: Male

DRUGS (1)
  1. VIGAMOX [Suspect]
     Indication: POSTOPERATIVE CARE
     Dosage: QID-QIH
     Route: 047
     Dates: start: 20100108, end: 20100116

REACTIONS (2)
  - ENDOPHTHALMITIS [None]
  - STAPHYLOCOCCAL INFECTION [None]
